FAERS Safety Report 9958225 (Version 2)
Quarter: 2014Q1

REPORT INFORMATION
  Report Type: Spontaneous
  Country: US (occurrence: US)
  Receive Date: 20140304
  Receipt Date: 20140304
  Transmission Date: 20141002
  Serious: No
  Sender: FDA-Public Use
  Company Number: US-ABBVIE-12P-163-1019037-00

PATIENT
  Age: 74 Year
  Sex: Male

DRUGS (10)
  1. HUMIRA [Suspect]
     Indication: RHEUMATOID ARTHRITIS
     Dates: start: 201112, end: 201305
  2. HUMIRA [Suspect]
     Dates: start: 201305
  3. METHOTREXATE [Concomitant]
     Indication: RHEUMATOID ARTHRITIS
  4. METFORMIN [Concomitant]
     Indication: PRODUCT USED FOR UNKNOWN INDICATION
  5. FLOVENT [Concomitant]
     Indication: ASTHMA
  6. METOPROLOL [Concomitant]
     Indication: PRODUCT USED FOR UNKNOWN INDICATION
  7. LEVOXYL [Concomitant]
     Indication: THYROID DISORDER
  8. LISINOPRIL [Concomitant]
     Indication: PRODUCT USED FOR UNKNOWN INDICATION
  9. SIMVASTATIN [Concomitant]
     Indication: PRODUCT USED FOR UNKNOWN INDICATION
  10. ADVAIR [Concomitant]
     Indication: ASTHMA

REACTIONS (5)
  - Abdominal discomfort [Recovered/Resolved]
  - Injection site pain [Recovered/Resolved]
  - Diarrhoea [Recovered/Resolved]
  - Injection site haemorrhage [Recovered/Resolved]
  - Injection site pain [Recovered/Resolved]
